FAERS Safety Report 5879624-0 (Version None)
Quarter: 2008Q3

REPORT INFORMATION
  Report Type: 
  Country: None (occurrence: None)
  Receive Date: 20080912
  Receipt Date: 20080903
  Transmission Date: 20090109
  Serious: Yes (Life-Threatening, Other)
  Sender: FDA-Public Use
  Company Number: JP-ASTRAZENECA-2008AP04371

PATIENT
  Age: 60 Year
  Sex: Male
  Weight: 59 kg

DRUGS (11)
  1. OMEPRAL TABLETS [Suspect]
     Indication: HAEMORRHAGIC EROSIVE GASTRITIS
     Route: 048
     Dates: start: 20080514, end: 20080526
  2. CALTAN [Concomitant]
     Indication: HYPERPHOSPHATURIA
     Dosage: 1.0 G X 3/DAY - 1.5 G X 2/DAY
     Route: 048
  3. JUVELA N [Concomitant]
     Route: 048
  4. GASTROM [Concomitant]
     Route: 048
  5. D-ALFA [Concomitant]
     Route: 048
  6. NU-LOTAN [Concomitant]
     Route: 048
  7. RENAGEL [Concomitant]
     Route: 048
  8. EPADEL [Concomitant]
     Route: 048
  9. ALLORIN [Concomitant]
     Route: 048
  10. CYANOCOBALAMIN [Concomitant]
     Route: 048
  11. ALLELOCK [Concomitant]
     Route: 048

REACTIONS (6)
  - DIALYSIS [None]
  - DYSPNOEA [None]
  - ERYTHEMA [None]
  - HEART RATE INCREASED [None]
  - LIVER DISORDER [None]
  - URTICARIA [None]
